FAERS Safety Report 9360840 (Version 3)
Quarter: 2014Q1

REPORT INFORMATION
  Report Type: Spontaneous
  Country: US (occurrence: US)
  Receive Date: 20130621
  Receipt Date: 20140318
  Transmission Date: 20141002
  Serious: Yes (Life-Threatening, Hospitalization)
  Sender: FDA-Public Use
  Company Number: US-BAYER-2013-071319

PATIENT
  Age: 39 Year
  Sex: Female
  Weight: 65.76 kg

DRUGS (1)
  1. MIRENA [Suspect]
     Indication: CONTRACEPTION
     Dosage: 20 MCG/24HR, CONT
     Route: 015
     Dates: start: 20080123, end: 20120105

REACTIONS (9)
  - Uterine perforation [None]
  - Infection [None]
  - Abdominal pain [None]
  - Injury [None]
  - General physical health deterioration [None]
  - Anhedonia [None]
  - Anxiety [None]
  - Emotional distress [None]
  - Stress [None]
